FAERS Safety Report 24293341 (Version 1)
Quarter: 2024Q3

REPORT INFORMATION
  Report Type: Spontaneous
  Country: US (occurrence: None)
  Receive Date: 20240906
  Receipt Date: 20240906
  Transmission Date: 20241017
  Serious: No
  Sender: DOMPE FARMACEUTICI
  Company Number: US-FARMAPROD-202308-202312-3779

PATIENT
  Sex: Female

DRUGS (17)
  1. OXERVATE [Suspect]
     Active Substance: CENEGERMIN-BKBJ
     Indication: Neurotrophic keratopathy
     Route: 047
     Dates: start: 20231115, end: 20231222
  2. PREDNISOLONE [Concomitant]
     Active Substance: PREDNISOLONE
     Dates: start: 202312
  3. IBUPROFEN [Concomitant]
     Active Substance: IBUPROFEN
  4. PRED FORTE [Concomitant]
     Active Substance: PREDNISOLONE ACETATE
  5. MOXIFLOXACIN [Concomitant]
     Active Substance: MOXIFLOXACIN
     Route: 061
     Dates: start: 20230626
  6. TIMOLOL MALEATE [Concomitant]
     Active Substance: TIMOLOL MALEATE
     Route: 061
     Dates: start: 20231117
  7. DIGOXIN [Concomitant]
     Active Substance: DIGOXIN
  8. PROLENSA [Concomitant]
     Active Substance: BROMFENAC SODIUM
  9. ENTRESTO [Concomitant]
     Active Substance: SACUBITRIL\VALSARTAN
     Dosage: 24 MG-26MG
  10. ELIQUIS [Concomitant]
     Active Substance: APIXABAN
  11. JARDIANCE [Concomitant]
     Active Substance: EMPAGLIFLOZIN
  12. ESOMEPRAZOLE MAGNESIUM [Concomitant]
     Active Substance: ESOMEPRAZOLE MAGNESIUM
  13. AMITRIPTYLINE HYDROCHLORIDE [Concomitant]
     Active Substance: AMITRIPTYLINE HYDROCHLORIDE
  14. GABAPENTIN [Concomitant]
     Active Substance: GABAPENTIN
  15. CARVEDILOL [Concomitant]
     Active Substance: CARVEDILOL
  16. BLOOD SERUM TEARS [Concomitant]
  17. PF ARTIFICIAL TEAR [Concomitant]
     Dates: start: 2021

REACTIONS (1)
  - Therapy non-responder [Unknown]
